FAERS Safety Report 9227626 (Version 1)
Quarter: 2013Q2

REPORT INFORMATION
  Report Type: Other
  Country: JP (occurrence: JP)
  Receive Date: 20130412
  Receipt Date: 20130412
  Transmission Date: 20140414
  Serious: Yes (Hospitalization)
  Sender: FDA-Public Use
  Company Number: JP-BRISTOL-MYERS SQUIBB COMPANY-18754408

PATIENT
  Age: 79 Year
  Sex: Male
  Weight: 55 kg

DRUGS (3)
  1. BRIPLATIN [Suspect]
     Indication: GASTRIC CANCER
  2. 5-FLUOROURACIL [Suspect]
     Indication: GASTRIC CANCER
  3. TS-1 [Suspect]
     Indication: GASTRIC CANCER

REACTIONS (2)
  - Pancytopenia [Unknown]
  - Disseminated intravascular coagulation [Unknown]
